FAERS Safety Report 8476017-7 (Version None)
Quarter: 2012Q2

REPORT INFORMATION
  Report Type: 
  Country: None (occurrence: None)
  Receive Date: 20120628
  Receipt Date: 20120618
  Transmission Date: 20120825
  Serious: Yes (Hospitalization, Other)
  Sender: FDA-Public Use
  Company Number: US-GENZYME-THYM-1003286

PATIENT
  Sex: Female
  Weight: 82.56 kg

DRUGS (32)
  1. LIPITOR [Concomitant]
     Indication: PRODUCT USED FOR UNKNOWN INDICATION
     Dosage: 20 MG, QD
     Route: 048
  2. LOVAZA [Concomitant]
     Dosage: 2 G, BID
     Route: 048
     Dates: start: 20110911, end: 20110913
  3. CALCITRIOL [Concomitant]
     Indication: PRODUCT USED FOR UNKNOWN INDICATION
     Dosage: 0.5 MCG, QD
     Route: 048
     Dates: start: 20110911, end: 20110913
  4. LOVAZA [Concomitant]
     Indication: PRODUCT USED FOR UNKNOWN INDICATION
     Dosage: 2 G, BID
     Route: 048
  5. CELLCEPT [Concomitant]
     Indication: PRODUCT USED FOR UNKNOWN INDICATION
     Dosage: 1000 MG, QD
     Route: 048
  6. CELLCEPT [Concomitant]
     Dosage: 1000 MG, BID
     Route: 048
     Dates: start: 20110911, end: 20110912
  7. DELTASONE [Concomitant]
     Dosage: 5 MG, QD
     Route: 048
     Dates: start: 20110713
  8. MAGNESIUM CHLORIDE [Concomitant]
     Indication: PRODUCT USED FOR UNKNOWN INDICATION
     Dosage: 535 MG, QD
     Route: 048
     Dates: start: 20110913, end: 20110913
  9. PROTONIX [Concomitant]
     Indication: PRODUCT USED FOR UNKNOWN INDICATION
     Dosage: 40 MG, QD
     Route: 048
  10. CELLCEPT [Concomitant]
     Dosage: 1000 MG, BID
     Route: 048
     Dates: start: 20110911, end: 20110911
  11. DELTASONE [Concomitant]
     Dosage: 5 MG, QD
     Route: 048
     Dates: start: 20110712
  12. DILAUDID [Concomitant]
     Indication: PAIN
     Dosage: 1 MG, Q4HR
     Route: 042
     Dates: start: 20110911, end: 20110912
  13. MICONAZOLE [Concomitant]
     Indication: PRODUCT USED FOR UNKNOWN INDICATION
     Dosage: 50 MG, QD
     Route: 002
     Dates: start: 20110912, end: 20110913
  14. SUMATRIPTAN [Concomitant]
     Indication: PRODUCT USED FOR UNKNOWN INDICATION
     Dosage: 6 MG, ONCE
     Route: 058
     Dates: start: 20110911, end: 20110911
  15. DAPSONE [Concomitant]
     Indication: OPPORTUNISTIC INFECTION PROPHYLAXIS
     Dosage: 50 MG, 3X/W
     Route: 048
     Dates: start: 20110912, end: 20110913
  16. TACROLIMUS [Concomitant]
     Dosage: 6 MG, BID
     Route: 048
     Dates: start: 20110911, end: 20110911
  17. DELTASONE [Concomitant]
     Indication: PRODUCT USED FOR UNKNOWN INDICATION
     Dosage: 5 MG, QD
     Route: 048
  18. TACROLIMUS [Concomitant]
     Dosage: 4 MG, QD
     Route: 048
     Dates: start: 20110912, end: 20110913
  19. VALGANCICLOVIR [Concomitant]
     Indication: OPPORTUNISTIC INFECTION PROPHYLAXIS
     Dosage: 225 MG, QD
     Route: 048
     Dates: start: 20110911, end: 20110912
  20. CELLCEPT [Concomitant]
     Dosage: 500 MG, BID
     Route: 048
     Dates: start: 20110912, end: 20110913
  21. PROMETHAZINE [Concomitant]
     Indication: PRODUCT USED FOR UNKNOWN INDICATION
     Dosage: 25 MG, Q4HR
     Route: 048
  22. LANSOPRAZOLE [Concomitant]
     Indication: PRODUCT USED FOR UNKNOWN INDICATION
     Dosage: 30 MG, QD
     Route: 048
  23. REGLAN [Concomitant]
     Dosage: 10 MG, QID
     Route: 042
     Dates: start: 20110912, end: 20110912
  24. TACROLIMUS [Concomitant]
     Indication: PRODUCT USED FOR UNKNOWN INDICATION
     Dosage: 3 MG, QD
     Route: 048
     Dates: start: 20110911, end: 20110913
  25. VALGANCICLOVIR [Concomitant]
     Dosage: 450 MG, BID
     Route: 048
     Dates: start: 20110912, end: 20110913
  26. DELTASONE [Concomitant]
     Dosage: 5 MG, QD
     Route: 048
     Dates: start: 20110711
  27. DELTASONE [Concomitant]
     Dosage: 5 MG, QD
     Route: 048
     Dates: start: 20110911, end: 20110913
  28. REGLAN [Concomitant]
     Dosage: 5 MG, ONCE
     Route: 042
     Dates: start: 20110912, end: 20110912
  29. THYMOGLOBULIN [Suspect]
     Indication: TRANSPLANT REJECTION
     Dosage: UNK
     Route: 065
     Dates: start: 20110705, end: 20110715
  30. DETROL [Concomitant]
     Indication: PRODUCT USED FOR UNKNOWN INDICATION
     Dosage: 1 MG, BID
     Route: 048
     Dates: start: 20110911, end: 20110913
  31. REGLAN [Concomitant]
     Indication: PRODUCT USED FOR UNKNOWN INDICATION
     Dosage: 5 MG, ONCE
     Route: 042
     Dates: start: 20110912, end: 20110913
  32. HYDROMORPHONE HCL [Concomitant]
     Indication: PAIN
     Dosage: 1 MG, PRN (EVERY 4 HRS)
     Route: 042
     Dates: start: 20110911, end: 20110912

REACTIONS (7)
  - METABOLIC ACIDOSIS [None]
  - RESPIRATORY DISORDER [None]
  - HYPERLIPIDAEMIA [None]
  - URINARY TRACT INFECTION [None]
  - PYREXIA [None]
  - NAUSEA [None]
  - HEADACHE [None]
